FAERS Safety Report 18399881 (Version 1)
Quarter: 2020Q4

REPORT INFORMATION
  Report Type: Spontaneous
  Country: US (occurrence: US)
  Receive Date: 20201019
  Receipt Date: 20201019
  Transmission Date: 20210114
  Serious: No
  Sender: FDA-Public Use
  Company Number: US-ALLERGAN-2025120US

PATIENT
  Age: 19 Year
  Sex: Female

DRUGS (3)
  1. VRAYLAR [Suspect]
     Active Substance: CARIPRAZINE
     Indication: BIPOLAR DISORDER
     Dosage: 3 MG
     Dates: start: 20200515
  2. VRAYLAR [Suspect]
     Active Substance: CARIPRAZINE
     Dosage: 1.5 UNK
     Dates: start: 20200423
  3. PROPRANOLOL [Suspect]
     Active Substance: PROPRANOLOL HYDROCHLORIDE
     Indication: PRODUCT USED FOR UNKNOWN INDICATION
     Dosage: 10 MG, BID
     Dates: start: 20200515

REACTIONS (3)
  - Blood pressure increased [Recovered/Resolved]
  - Akathisia [Recovered/Resolved]
  - Heart rate increased [Recovered/Resolved]
